FAERS Safety Report 10162528 (Version 1)
Quarter: 2014Q2

REPORT INFORMATION
  Report Type: Spontaneous
  Country: US (occurrence: US)
  Receive Date: 20140509
  Receipt Date: 20140509
  Transmission Date: 20141212
  Serious: Yes (Other)
  Sender: FDA-Public Use
  Company Number: US-PFIZER INC-2014125515

PATIENT
  Age: 34 Year
  Sex: Male
  Weight: 68.93 kg

DRUGS (2)
  1. VIAGRA [Suspect]
     Indication: ERECTILE DYSFUNCTION
     Dosage: UNK, AS NEEDED
     Route: 048
     Dates: start: 20140505
  2. DEPO-TESTOSTERONE [Concomitant]
     Indication: BLOOD TESTOSTERONE DECREASED
     Dosage: UNK
     Dates: start: 2014

REACTIONS (2)
  - Erection increased [Not Recovered/Not Resolved]
  - Anorgasmia [Unknown]
